FAERS Safety Report 9023649 (Version 1)
Quarter: 2013Q1

REPORT INFORMATION
  Report Type: Spontaneous
  Country: SE (occurrence: SE)
  Receive Date: 20130121
  Receipt Date: 20130121
  Transmission Date: 20140127
  Serious: Yes (Hospitalization)
  Sender: FDA-Public Use
  Company Number: SE-SANOFI-AVENTIS-2013SA003178

PATIENT
  Age: 91 Year
  Sex: Male

DRUGS (7)
  1. ALFUZOSIN HYDROCHLORIDE [Suspect]
     Indication: BENIGN PROSTATIC HYPERPLASIA
     Route: 065
  2. TEGRETOL - SLOW RELEASE [Concomitant]
     Dosage: STRENGTH: 200 MG
  3. ATORVASTATIN CALCIUM [Concomitant]
     Dosage: STRENGTH: 20 MG
  4. ARTROX [Concomitant]
     Dosage: STRENGTH: 625 MG.
  5. TROMBYL [Concomitant]
     Dosage: STRENGTH: 75 MG
  6. TRIATEC [Concomitant]
     Dosage: STRENGTH: 5MG
  7. KREDEX [Concomitant]
     Dosage: STRENGTH: 625 MG.

REACTIONS (2)
  - Hypotension [Recovered/Resolved]
  - Orthostatic hypotension [Recovered/Resolved]
